FAERS Safety Report 19866217 (Version 6)
Quarter: 2021Q4

REPORT INFORMATION
  Report Type: Report from Study
  Country: KR (occurrence: None)
  Receive Date: 20210922
  Receipt Date: 20211215
  Transmission Date: 20220303
  Serious: Yes (Other)
  Sender: FDA-Public Use
  Company Number: KR-ROCHE-2913510

PATIENT
  Age: 74 Year
  Sex: Male
  Weight: 90 kg

DRUGS (9)
  1. FARICIMAB [Suspect]
     Active Substance: FARICIMAB
     Indication: Diabetic retinal oedema
     Dosage: DATE OF MOST RECENT DOSE OF STUDY DRUG PRIOR TO SAE (START TIME: 3.53 PM)
     Route: 050
     Dates: start: 20210608
  2. FARICIMAB [Suspect]
     Active Substance: FARICIMAB
     Indication: Retinal vein occlusion
  3. AFLIBERCEPT [Suspect]
     Active Substance: AFLIBERCEPT
     Indication: Diabetic retinal oedema
     Dosage: DATE OF MOST RECENT DOSE OF STUDY DRUG PRIOR TO SAE (START TIME: 3.53 PM)
     Route: 050
     Dates: start: 20210608
  4. AFLIBERCEPT [Suspect]
     Active Substance: AFLIBERCEPT
     Indication: Retinal vein occlusion
  5. RANIBIZUMAB [Suspect]
     Active Substance: RANIBIZUMAB
     Indication: Diabetic retinal oedema
     Dosage: START DATE OF MOST RECENT DOSE OF STUDY DRUG?PRIOR TO SAE 16-SEP-2019
     Route: 050
     Dates: start: 20210621
  6. RANIBIZUMAB [Suspect]
     Active Substance: RANIBIZUMAB
     Indication: Retinal vein occlusion
  7. TAGEN-F [Concomitant]
     Indication: Retinal vein occlusion
     Route: 048
     Dates: start: 20081223
  8. CILOSTAZOL [Concomitant]
     Active Substance: CILOSTAZOL
     Indication: Retinal vein occlusion
     Route: 048
     Dates: start: 20161124
  9. XALATAN [Concomitant]
     Active Substance: LATANOPROST
     Indication: Glaucoma
     Route: 047
     Dates: start: 20091229

REACTIONS (1)
  - Vitreous haemorrhage [Recovered/Resolved]

NARRATIVE: CASE EVENT DATE: 20210614
